FAERS Safety Report 8911379 (Version 1)
Quarter: 2012Q4

REPORT INFORMATION
  Report Type: Spontaneous
  Country: GB (occurrence: None)
  Receive Date: 20121113
  Receipt Date: 20121113
  Transmission Date: 20130627
  Serious: Yes (Other)
  Sender: FDA-Public Use
  Company Number: 2012MA013006

PATIENT

DRUGS (1)
  1. KADIAN [Suspect]

REACTIONS (4)
  - Echolalia [None]
  - Perseveration [None]
  - Cognitive disorder [None]
  - Leukoencephalopathy [None]
